FAERS Safety Report 13352227 (Version 1)
Quarter: 2017Q1

REPORT INFORMATION
  Report Type: Spontaneous
  Country: US (occurrence: US)
  Receive Date: 20170320
  Receipt Date: 20170320
  Transmission Date: 20170429
  Serious: No
  Sender: FDA-Public Use
  Company Number: US-SA-2016SA094021

PATIENT
  Age: 74 Year
  Sex: Female

DRUGS (2)
  1. NASACORT ALLERGY 24HR [Suspect]
     Active Substance: TRIAMCINOLONE ACETONIDE
     Indication: MULTIPLE ALLERGIES
     Dosage: DOSE: ONE SPRAY IN EACH NOSTRILE
     Route: 045
     Dates: start: 201602, end: 20160509
  2. NASACORT ALLERGY 24HR [Suspect]
     Active Substance: TRIAMCINOLONE ACETONIDE
     Indication: MULTIPLE ALLERGIES
     Dosage: DOSE: ONE SPRAY IN EACH NOSTRILE
     Route: 045
     Dates: start: 201602, end: 20160509

REACTIONS (8)
  - Depression [Unknown]
  - Balance disorder [Unknown]
  - Feeling abnormal [Recovered/Resolved]
  - Dizziness [Unknown]
  - Fatigue [Recovered/Resolved]
  - Somnolence [Recovered/Resolved]
  - Head discomfort [Recovered/Resolved]
  - Tinnitus [Unknown]
